FAERS Safety Report 6766883-5 (Version None)
Quarter: 2010Q2

REPORT INFORMATION
  Report Type: 
  Country: None (occurrence: None)
  Receive Date: 20100611
  Receipt Date: 20100602
  Transmission Date: 20101027
  Serious: Yes (Other)
  Sender: FDA-Public Use
  Company Number: BR-MEDIMMUNE-MEDI-0011205

PATIENT
  Sex: Female
  Weight: 5.13 kg

DRUGS (4)
  1. SYNAGIS [Suspect]
     Indication: CARDIAC DISORDER
     Route: 030
     Dates: start: 20100428, end: 20100428
  2. PROPRANOLOL [Concomitant]
     Dosage: 1 TABLET DISSOLVED IN 10 ML
     Route: 048
  3. FERROUS SULFATE TAB [Concomitant]
     Route: 048
     Dates: start: 20100301
  4. VITAMIN AD [Concomitant]
     Indication: VITAMIN SUPPLEMENTATION
     Route: 048
     Dates: start: 20100301

REACTIONS (1)
  - LABORATORY TEST ABNORMAL [None]
